FAERS Safety Report 9619137 (Version 2)
Quarter: 2013Q4

REPORT INFORMATION
  Report Type: Spontaneous
  Country: PE (occurrence: PE)
  Receive Date: 20131014
  Receipt Date: 20131111
  Transmission Date: 20140711
  Serious: Yes (Death, Other)
  Sender: FDA-Public Use
  Company Number: PE-PFIZER INC-2013292359

PATIENT
  Age: 70 Year
  Sex: Female

DRUGS (3)
  1. LYRICA [Suspect]
     Indication: DIABETIC NEUROPATHY
     Dosage: 75 MG, 1X/DAY
     Route: 048
     Dates: start: 201001, end: 20130907
  2. MICARDIS HCT [Concomitant]
     Indication: HYPERTENSION
     Route: 048
  3. INSULIN [Concomitant]
     Indication: DIABETES MELLITUS
     Route: 058

REACTIONS (1)
  - Myocardial infarction [Fatal]
